FAERS Safety Report 5870212-9 (Version None)
Quarter: 2008Q3

REPORT INFORMATION
  Report Type: 
  Country: None (occurrence: None)
  Receive Date: 20080902
  Receipt Date: 20080815
  Transmission Date: 20090109
  Serious: Yes (Other)
  Sender: FDA-Public Use
  Company Number: 2008009735

PATIENT
  Age: 79 Year
  Sex: Male

DRUGS (1)
  1. LISTERINE TOOTH DEFENSE (SODIUM FLUORIDE) [Suspect]
     Indication: DENTAL DISORDER PROPHYLAXIS
     Dosage: SMALL PART OF CAP, TWICE A DAY (2 IN 1 D),ORAL
     Route: 048
     Dates: start: 20080401, end: 20080406

REACTIONS (2)
  - AGEUSIA [None]
  - GLOSSODYNIA [None]
